FAERS Safety Report 12601933 (Version 1)
Quarter: 2016Q3

REPORT INFORMATION
  Report Type: Spontaneous
  Country: RO (occurrence: RO)
  Receive Date: 20160728
  Receipt Date: 20160728
  Transmission Date: 20161109
  Serious: Yes (Other)
  Sender: FDA-Public Use
  Company Number: RO-JNJFOC-20160721392

PATIENT
  Age: 20 Year
  Sex: Male

DRUGS (4)
  1. RISPOLEPT [Suspect]
     Active Substance: RISPERIDONE
     Indication: AFFECTIVE DISORDER
     Dosage: 3 WEEKS AGO FROM THE TIME OF REPORT.
     Route: 065
  2. CIPRALEX [Suspect]
     Active Substance: ESCITALOPRAM OXALATE
     Indication: AFFECTIVE DISORDER
     Dosage: 3 WEEKS AGO FROM THE TIME OF REPORT.
     Route: 065
  3. NEUROMULTIVIT [Suspect]
     Active Substance: CYANOCOBALAMIN\PYRIDOXINE\THIAMINE
     Indication: AFFECTIVE DISORDER
     Dosage: 3 WEEKS AGO FROM THE TIME OF REPORT.
     Route: 065
  4. VALPROIC ACID. [Suspect]
     Active Substance: VALPROIC ACID
     Indication: AFFECTIVE DISORDER
     Dosage: 3 WEEKS AGO FROM THE TIME OF REPORT.
     Route: 065

REACTIONS (7)
  - Anxiety [Unknown]
  - Product use issue [Unknown]
  - Panic disorder [Unknown]
  - Off label use [Unknown]
  - Muscle spasms [Unknown]
  - Mental impairment [Unknown]
  - Erectile dysfunction [Unknown]
